FAERS Safety Report 11897783 (Version 1)
Quarter: 2016Q1

REPORT INFORMATION
  Report Type: Spontaneous
  Country: US (occurrence: None)
  Receive Date: 20160107
  Receipt Date: 20160107
  Transmission Date: 20160526
  Serious: Yes (Hospitalization, Other)
  Sender: FDA-Public Use
  Company Number: None

PATIENT
  Age: 30 Year
  Sex: Female
  Weight: 54.43 kg

DRUGS (9)
  1. PREDNISONE. [Concomitant]
     Active Substance: PREDNISONE
  2. ZOFRAN [Concomitant]
     Active Substance: ONDANSETRON HYDROCHLORIDE
  3. LEVSIN [Concomitant]
     Active Substance: HYOSCYAMINE SULFATE
  4. MIRALAX [Concomitant]
     Active Substance: POLYETHYLENE GLYCOL 3350
  5. AMETHYST [Concomitant]
     Active Substance: ETHINYL ESTRADIOL\LEVONORGESTREL
  6. TYLENOL [Concomitant]
     Active Substance: ACETAMINOPHEN
  7. ENTYVIO [Suspect]
     Active Substance: VEDOLIZUMAB
     Indication: CROHN^S DISEASE
     Dosage: ONCE EVERY 5 WEEKS
     Route: 042
  8. MERCAPTOPURINE. [Concomitant]
     Active Substance: MERCAPTOPURINE
  9. CLARITIN [Concomitant]
     Active Substance: LORATADINE

REACTIONS (9)
  - Back pain [None]
  - Rash [None]
  - Constipation [None]
  - Contusion [None]
  - Influenza [None]
  - Abdominal pain upper [None]
  - Malaise [None]
  - Cough [None]
  - Nausea [None]

NARRATIVE: CASE EVENT DATE: 20160106
